FAERS Safety Report 10465241 (Version 2)
Quarter: 2014Q3

REPORT INFORMATION
  Report Type: Spontaneous
  Country: GB (occurrence: GB)
  Receive Date: 20140919
  Receipt Date: 20140930
  Transmission Date: 20150326
  Serious: Yes (Other)
  Sender: FDA-Public Use
  Company Number: GB-WATSON-2014-20175

PATIENT
  Sex: Male

DRUGS (2)
  1. MIRTAZAPINE (UNKNOWN) [Suspect]
     Active Substance: MIRTAZAPINE
     Indication: PRODUCT USED FOR UNKNOWN INDICATION
     Dosage: UNK; THE PATIENT WAS TAKING BISOPROLO AND MIRTAZAPINE TOGETHER SINCE LAST MONTH
     Route: 065
  2. BISOPROLOL MYLAN [Interacting]
     Active Substance: BISOPROLOL
     Indication: PRODUCT USED FOR UNKNOWN INDICATION
     Dosage: UNK; THE PATIENT WAS TAKING BISOPROLO AND MIRTAZAPINE TOGETHER SINCE LAST MONTH;BISOPROLOL MYLAN
     Route: 065

REACTIONS (2)
  - Labelled drug-drug interaction medication error [Unknown]
  - Oxygen saturation decreased [Unknown]
